FAERS Safety Report 17010729 (Version 2)
Quarter: 2019Q4

REPORT INFORMATION
  Report Type: Spontaneous
  Country: US (occurrence: US)
  Receive Date: 20191108
  Receipt Date: 20191218
  Transmission Date: 20200122
  Serious: No
  Sender: FDA-Public Use
  Company Number: US-ASTRAZENECA-2019SF45490

PATIENT
  Age: 25397 Day
  Sex: Female
  Weight: 51.3 kg

DRUGS (4)
  1. SYMBICORT [Suspect]
     Active Substance: BUDESONIDE\FORMOTEROL FUMARATE DIHYDRATE
     Indication: BRONCHITIS CHRONIC
     Dosage: UNKNOWN
     Route: 055
  2. SYMBICORT [Suspect]
     Active Substance: BUDESONIDE\FORMOTEROL FUMARATE DIHYDRATE
     Indication: BRONCHITIS CHRONIC
     Dosage: 160/4.5 MCG TWO RESPIRATORY INHALATIONS TWICE A DAY THREE YEARS AGO
     Route: 055
     Dates: end: 20191005
  3. SYMBICORT [Suspect]
     Active Substance: BUDESONIDE\FORMOTEROL FUMARATE DIHYDRATE
     Indication: BRONCHITIS CHRONIC
     Dosage: 160/4.5 MCG TWO RESPIRATORY INHALATIONS TWICE A DAY THREE YEARS AGO
     Route: 055
     Dates: end: 20191005
  4. SYMBICORT [Suspect]
     Active Substance: BUDESONIDE\FORMOTEROL FUMARATE DIHYDRATE
     Indication: BRONCHITIS CHRONIC
     Dosage: UNKNOWN
     Route: 055

REACTIONS (5)
  - Product dose omission [Not Recovered/Not Resolved]
  - Wrong technique in product usage process [Not Recovered/Not Resolved]
  - Device issue [Unknown]
  - Pneumonia [Not Recovered/Not Resolved]
  - Feeling abnormal [Unknown]

NARRATIVE: CASE EVENT DATE: 20191006
